FAERS Safety Report 8178262-7 (Version None)
Quarter: 2012Q1

REPORT INFORMATION
  Report Type: 
  Country: None (occurrence: None)
  Receive Date: 20120301
  Receipt Date: 20120221
  Transmission Date: 20120608
  Serious: Yes (Other)
  Sender: FDA-Public Use
  Company Number: DE-JNJFOC-20120206847

PATIENT
  Age: 35 Year
  Sex: Male

DRUGS (1)
  1. STELARA [Suspect]
     Indication: PSORIASIS
     Route: 058
     Dates: start: 20111201

REACTIONS (4)
  - CENTRAL NERVOUS SYSTEM LESION [None]
  - DIZZINESS [None]
  - ASTHENIA [None]
  - VISUAL IMPAIRMENT [None]
